FAERS Safety Report 18702252 (Version 1)
Quarter: 2021Q1

REPORT INFORMATION
  Report Type: Spontaneous
  Country: US (occurrence: US)
  Receive Date: 20210105
  Receipt Date: 20210105
  Transmission Date: 20210419
  Serious: Yes (Hospitalization)
  Sender: FDA-Public Use
  Company Number: US-AMNEAL PHARMACEUTICALS-2020-AMRX-04111

PATIENT
  Age: 58 Year
  Sex: Male

DRUGS (1)
  1. IBUPROFEN. [Suspect]
     Active Substance: IBUPROFEN
     Indication: PAIN
     Dosage: 60 PILLS OF 200MG IBUPROFEN DAILY FOR 10 DAYS (UP TO 12 GRAMS/DAY)
     Route: 065

REACTIONS (3)
  - Toxicity to various agents [Recovered/Resolved]
  - Renal tubular acidosis [Recovered/Resolved]
  - Electrocardiogram QRS complex prolonged [Recovered/Resolved]
